FAERS Safety Report 22161697 (Version 1)
Quarter: 2023Q1

REPORT INFORMATION
  Report Type: Report from Study
  Country: IT (occurrence: IT)
  Receive Date: 20230331
  Receipt Date: 20230331
  Transmission Date: 20230418
  Serious: Yes (Hospitalization, Other)
  Sender: FDA-Public Use
  Company Number: IT-AMRYT PHARMACEUTICALS DAC-AEGR005348

PATIENT

DRUGS (20)
  1. LOMITAPIDE MESYLATE [Suspect]
     Active Substance: LOMITAPIDE MESYLATE
     Indication: Type IIa hyperlipidaemia
     Dosage: 5 MILLIGRAM, QD
     Dates: start: 20170524, end: 20181001
  2. LOMITAPIDE MESYLATE [Suspect]
     Active Substance: LOMITAPIDE MESYLATE
     Dosage: 10 MILLIGRAM, QOD
     Dates: start: 20181002, end: 20181221
  3. LOMITAPIDE MESYLATE [Suspect]
     Active Substance: LOMITAPIDE MESYLATE
     Dosage: 5 MILLIGRAM, QD
     Dates: start: 20181222, end: 20210830
  4. LOMITAPIDE MESYLATE [Suspect]
     Active Substance: LOMITAPIDE MESYLATE
     Dosage: 10 MILLIGRAM, QD
     Dates: start: 20210830
  5. LOMITAPIDE MESYLATE [Suspect]
     Active Substance: LOMITAPIDE MESYLATE
     Dosage: 5 MILLIGRAM, QD
     Dates: start: 20211103, end: 20230314
  6. ASPIRIN [Concomitant]
     Active Substance: ASPIRIN
     Indication: Prophylaxis
     Dosage: 100 MILLIGRAM, QD
     Route: 048
     Dates: start: 2015
  7. CRESTOR [Concomitant]
     Active Substance: ROSUVASTATIN CALCIUM
     Indication: Hypercholesterolaemia
     Dosage: 40 MILLIGRAM, QD
     Route: 048
     Dates: start: 2016
  8. EZETIMIBE [Concomitant]
     Active Substance: EZETIMIBE
     Indication: Hypercholesterolaemia
     Dosage: 10 MILLIGRAM, QD
     Route: 048
     Dates: start: 2015
  9. PANTOPRAZOLE [Concomitant]
     Active Substance: PANTOPRAZOLE
     Indication: Prophylaxis
     Dosage: 20 MILLIGRAM, QD
     Route: 048
     Dates: start: 2015, end: 20210927
  10. PANTOPRAZOLE [Concomitant]
     Active Substance: PANTOPRAZOLE
     Dosage: 40 MILLIGRAM, QD
     Route: 048
     Dates: start: 20210928, end: 202111
  11. PANTOPRAZOLE [Concomitant]
     Active Substance: PANTOPRAZOLE
     Dosage: 20 MILLIGRAM, QD
     Route: 048
     Dates: start: 20211103
  12. RAMIPRIL [Concomitant]
     Active Substance: RAMIPRIL
     Indication: Prophylaxis
     Dosage: 2.5 MILLIGRAM, QD
     Route: 048
     Dates: start: 2015, end: 20210301
  13. RAMIPRIL [Concomitant]
     Active Substance: RAMIPRIL
     Indication: Hypertension
     Dosage: 5 MILLIGRAM, QD
     Route: 048
     Dates: start: 20210302, end: 20220729
  14. RAMIPRIL [Concomitant]
     Active Substance: RAMIPRIL
     Dosage: 2.5 MILLIGRAM, QD
     Route: 048
     Dates: start: 20220730
  15. OMEGA-3 FATTY ACIDS [Concomitant]
     Active Substance: OMEGA-3 FATTY ACIDS
     Indication: Hypercholesterolaemia
     Dosage: 3000 MILLIGRAM, QD
     Dates: start: 2015
  16. VITAMIN E NATURAL [TOCOPHEROL] [Concomitant]
     Indication: Supplementation therapy
     Dosage: 50 MILLIGRAM, QD
     Route: 048
     Dates: start: 201910
  17. GAVISCON [ALUMINIUM HYDROXIDE;MAGNESIUM CARBONATE] [Concomitant]
     Indication: Antacid therapy
     Dosage: 1 DOSAGE FORM, PRN
     Route: 048
     Dates: start: 202202
  18. CHOLECALCIFEROL [Concomitant]
     Active Substance: CHOLECALCIFEROL
     Indication: Supplementation therapy
     Dosage: 25000 INTERNATIONAL UNIT, Q2W (ONCE EVERY 2 WEEKS)
     Route: 048
     Dates: start: 20220201
  19. RANOLAZINE [Concomitant]
     Active Substance: RANOLAZINE
     Indication: Prophylaxis
     Dosage: 375 MILLIGRAM, BID
     Route: 048
     Dates: start: 20210702, end: 20220503
  20. RANOLAZINE [Concomitant]
     Active Substance: RANOLAZINE
     Dosage: 500 MILLIGRAM, BID
     Route: 048
     Dates: start: 20220504

REACTIONS (5)
  - Angina pectoris [Recovered/Resolved]
  - Hepatic steatosis [Unknown]
  - Angina pectoris [Recovered/Resolved]
  - Carotid arteriosclerosis [Unknown]
  - Peripheral arterial occlusive disease [Unknown]

NARRATIVE: CASE EVENT DATE: 20210624
